FAERS Safety Report 24129083 (Version 1)
Quarter: 2024Q3

REPORT INFORMATION
  Report Type: Spontaneous
  Country: US (occurrence: None)
  Receive Date: 20240722
  Receipt Date: 20240722
  Transmission Date: 20241017
  Serious: Yes (Life-Threatening, Hospitalization)
  Sender: Public
  Company Number: None

PATIENT
  Age: 70 Year
  Sex: Male
  Weight: 61.1 kg

DRUGS (1)
  1. EPCORITAMAB [Suspect]
     Active Substance: EPCORITAMAB
     Route: 058
     Dates: start: 20240702, end: 20240709

REACTIONS (14)
  - Asthenia [None]
  - Urinary incontinence [None]
  - Anal incontinence [None]
  - Fatigue [None]
  - Mental status changes [None]
  - Cytopenia [None]
  - Failure to thrive [None]
  - Tachypnoea [None]
  - Hypoxia [None]
  - Hypotension [None]
  - Tachycardia [None]
  - Cytokine release syndrome [None]
  - Immune effector cell-associated neurotoxicity syndrome [None]
  - Sepsis [None]

NARRATIVE: CASE EVENT DATE: 20240711
